FAERS Safety Report 5770997-6 (Version None)
Quarter: 2008Q2

REPORT INFORMATION
  Report Type: 
  Country: None (occurrence: None)
  Receive Date: 20080613
  Receipt Date: 20080523
  Transmission Date: 20081010
  Serious: No
  Sender: FDA-Public Use
  Company Number: US-ABBOTT-08P-163-0453143-00

PATIENT
  Sex: Female
  Weight: 59.02 kg

DRUGS (2)
  1. HUMIRA [Suspect]
     Indication: PSORIASIS
     Dates: start: 20080519
  2. DYAZIDE [Concomitant]
     Indication: MENIERE'S DISEASE
     Dosage: 0.5MILLIGRAM/ 5MILLIGRAM

REACTIONS (4)
  - DYSPNOEA [None]
  - FATIGUE [None]
  - NAUSEA [None]
  - PARAESTHESIA [None]
